FAERS Safety Report 9648147 (Version 2)
Quarter: 2015Q1

REPORT INFORMATION
  Report Type: Report from Study
  Country: JP (occurrence: JP)
  Receive Date: 20131028
  Receipt Date: 20150206
  Transmission Date: 20150721
  Serious: Yes (Hospitalization)
  Sender: FDA-Public Use
  Company Number: PHHY2013JP120722

PATIENT
  Age: 73 Year
  Sex: Male

DRUGS (18)
  1. CLOZARIL [Suspect]
     Active Substance: CLOZAPINE
     Dosage: 75 MG, UNK
     Route: 048
     Dates: start: 20130327, end: 20130329
  2. RISPERIDONE. [Concomitant]
     Active Substance: RISPERIDONE
     Dosage: 6 MG, UNK
     Route: 048
     Dates: start: 20130503
  3. LIMAS [Concomitant]
     Active Substance: LITHIUM CARBONATE
     Indication: SCHIZOPHRENIA, DISORGANISED TYPE
     Dosage: 600 MG, UNK
     Route: 048
     Dates: start: 20130320
  4. CLOZARIL [Suspect]
     Active Substance: CLOZAPINE
     Dosage: 25 MG, QD
     Route: 048
     Dates: start: 20130321, end: 20130323
  5. CONTOMIN [Concomitant]
     Active Substance: CHLORPROMAZINE
     Indication: PRODUCT USED FOR UNKNOWN INDICATION
     Dosage: 300 MG, UNK
     Route: 048
     Dates: start: 20130320, end: 20130321
  6. MAGMITT [Concomitant]
     Active Substance: MAGNESIUM OXIDE
     Indication: SCHIZOPHRENIA, DISORGANISED TYPE
     Dosage: 2970 MG, UNK
     Route: 048
     Dates: start: 20130320
  7. TASMOLIN//BIPERIDEN HYDROCHLORIDE [Concomitant]
     Dosage: 2 MG, UNK
     Route: 048
     Dates: start: 20130322, end: 20130323
  8. CLOZARIL [Suspect]
     Active Substance: CLOZAPINE
     Indication: SCHIZOPHRENIA, DISORGANISED TYPE
     Dosage: 12.5 MG, QD
     Route: 048
     Dates: start: 20130320, end: 20130320
  9. LINTON [Concomitant]
     Active Substance: HALOPERIDOL
     Dosage: 6 MG, UNK
     Route: 048
     Dates: start: 20130322, end: 20130323
  10. RISPERIDONE. [Concomitant]
     Active Substance: RISPERIDONE
     Indication: PRODUCT USED FOR UNKNOWN INDICATION
     Dosage: 6 MG, UNK
     Route: 048
     Dates: start: 20130407, end: 20130423
  11. CONTOMIN [Concomitant]
     Active Substance: CHLORPROMAZINE
     Dosage: 100 MG, UNK
     Route: 048
     Dates: start: 20130322, end: 20130323
  12. TASMOLIN//BIPERIDEN HYDROCHLORIDE [Concomitant]
     Indication: SCHIZOPHRENIA, DISORGANISED TYPE
     Dosage: 3 MG, UNK
     Route: 048
     Dates: start: 20130320, end: 20130321
  13. CLOZARIL [Suspect]
     Active Substance: CLOZAPINE
     Dosage: 75 MG, UNK
     Route: 048
     Dates: start: 20130402, end: 20130404
  14. LINTON [Concomitant]
     Active Substance: HALOPERIDOL
     Indication: PRODUCT USED FOR UNKNOWN INDICATION
     Dosage: 9 MG, UNK
     Route: 048
     Dates: start: 20130320, end: 20130321
  15. POLYFUL [Concomitant]
     Active Substance: CALCIUM POLYCARBOPHIL
     Indication: SCHIZOPHRENIA, DISORGANISED TYPE
     Dosage: 1500 MG, UNK
     Route: 048
     Dates: start: 20130320
  16. CLOZARIL [Suspect]
     Active Substance: CLOZAPINE
     Dosage: 100 MG, UNK
     Route: 048
     Dates: start: 20130330, end: 20130401
  17. CLOZARIL [Suspect]
     Active Substance: CLOZAPINE
     Dosage: 50 MG, QD
     Route: 048
     Dates: start: 20130324, end: 20130326
  18. RISPERIDONE. [Concomitant]
     Active Substance: RISPERIDONE
     Dosage: 8 MG, UNK
     Route: 048
     Dates: start: 20130424, end: 20130502

REACTIONS (4)
  - Colon cancer [Not Recovered/Not Resolved]
  - Haemoglobin decreased [Unknown]
  - Haematochezia [Unknown]
  - Heart rate increased [Unknown]

NARRATIVE: CASE EVENT DATE: 20130326
